FAERS Safety Report 6330172-3 (Version None)
Quarter: 2009Q3

REPORT INFORMATION
  Report Type: 
  Country: None (occurrence: None)
  Receive Date: 20090827
  Receipt Date: 20070516
  Transmission Date: 20100115
  Serious: Yes (Other)
  Sender: FDA-Public Use
  Company Number: US-ASTRAZENECA-2006UW25176

PATIENT
  Age: 20499 Day
  Sex: Male
  Weight: 61.2 kg

DRUGS (13)
  1. SEROQUEL [Suspect]
     Indication: DEPRESSION
     Route: 048
     Dates: start: 20051102
  2. SEROQUEL [Suspect]
     Indication: SLEEP DISORDER
     Route: 048
     Dates: start: 20051102
  3. SEROQUEL [Suspect]
     Indication: HALLUCINATION, AUDITORY
     Route: 048
     Dates: start: 20051102
  4. SEROQUEL [Suspect]
     Route: 048
     Dates: start: 20051115
  5. SEROQUEL [Suspect]
     Route: 048
     Dates: start: 20051115
  6. SEROQUEL [Suspect]
     Route: 048
     Dates: start: 20051115
  7. HALDOL [Concomitant]
  8. RISPERDAL [Concomitant]
  9. THORAZINE [Concomitant]
  10. AVANDIA [Concomitant]
     Indication: TYPE 2 DIABETES MELLITUS
     Dosage: 2 TO 4 MG
     Dates: start: 20051229
  11. GLYBURIDE [Concomitant]
     Route: 048
     Dates: start: 20051229
  12. GLUCOPHAGE [Concomitant]
     Indication: TYPE 2 DIABETES MELLITUS
     Route: 048
     Dates: start: 20051109
  13. ZOLOFT [Concomitant]
     Route: 048
     Dates: start: 20051202

REACTIONS (4)
  - DIABETES MELLITUS [None]
  - METABOLIC DISORDER [None]
  - TARDIVE DYSKINESIA [None]
  - TYPE 2 DIABETES MELLITUS [None]
